FAERS Safety Report 17652167 (Version 1)
Quarter: 2020Q2

REPORT INFORMATION
  Report Type: Report from Study
  Country: AR (occurrence: AR)
  Receive Date: 20200409
  Receipt Date: 20200409
  Transmission Date: 20200713
  Serious: Yes (Other)
  Sender: FDA-Public Use
  Company Number: AR-ACTELION-A-CH2020-200571

PATIENT
  Age: 5 Year
  Sex: Male
  Weight: 14 kg

DRUGS (2)
  1. ZAVESCA [Suspect]
     Active Substance: MIGLUSTAT
     Indication: NIEMANN-PICK DISEASE
     Dosage: 2 DF, QD
     Route: 048
     Dates: start: 20170301
  2. ZAVESCA [Suspect]
     Active Substance: MIGLUSTAT
     Dosage: 600 UNK
     Route: 048

REACTIONS (3)
  - Secretion discharge [Unknown]
  - Pyrexia [Unknown]
  - Intentional product misuse [Unknown]

NARRATIVE: CASE EVENT DATE: 202004
